FAERS Safety Report 7508714-1 (Version None)
Quarter: 2011Q2

REPORT INFORMATION
  Report Type: 
  Country: None (occurrence: None)
  Receive Date: 20110527
  Receipt Date: 20100823
  Transmission Date: 20111010
  Serious: No
  Sender: FDA-Public Use
  Company Number: A0878196A

PATIENT
  Age: 54 Year
  Sex: Male

DRUGS (1)
  1. VENTOLIN HFA [Suspect]
     Dosage: 90MCG UNKNOWN
     Route: 055
     Dates: start: 20100610

REACTIONS (3)
  - DRUG INEFFECTIVE [None]
  - PRODUCT QUALITY ISSUE [None]
  - HEADACHE [None]
